FAERS Safety Report 23219438 (Version 1)
Quarter: 2023Q4

REPORT INFORMATION
  Report Type: Report from Study
  Country: US (occurrence: US)
  Receive Date: 20231122
  Receipt Date: 20231122
  Transmission Date: 20240109
  Serious: Yes (Death)
  Sender: FDA-Public Use
  Company Number: US-DAIICHI SANKYO, INC.-DSU-2023-148174AA

PATIENT
  Age: 22 Year
  Sex: Male

DRUGS (1)
  1. ENHERTU [Suspect]
     Active Substance: FAM-TRASTUZUMAB DERUXTECAN-NXKI
     Indication: Product used for unknown indication
     Dosage: 444 MG, ONCE EVERY 3 WK
     Route: 042
     Dates: start: 20230927

REACTIONS (1)
  - Death [Fatal]

NARRATIVE: CASE EVENT DATE: 20231023
